FAERS Safety Report 7955091-8 (Version None)
Quarter: 2011Q4

REPORT INFORMATION
  Report Type: 
  Country: None (occurrence: None)
  Receive Date: 20111202
  Receipt Date: 20111128
  Transmission Date: 20120403
  Serious: Yes (Hospitalization)
  Sender: FDA-Public Use
  Company Number: JP-B.I. PHARMACEUTICALS,INC./RIDGEFIELD-2011-BP-26007NB

PATIENT
  Age: 67 Year
  Sex: Male

DRUGS (12)
  1. LIVALO [Suspect]
     Dosage: 1 MG
     Route: 048
     Dates: end: 20111019
  2. MADOPAR [Concomitant]
     Dosage: 100 MG
     Route: 065
     Dates: end: 20111019
  3. STIBRON [Concomitant]
     Route: 065
     Dates: end: 20111019
  4. ARICEPT [Suspect]
     Dosage: 5 MG
     Route: 065
     Dates: end: 20111019
  5. SITAGLIPTIN PHOSPHATE [Suspect]
     Dosage: 50 MG
     Route: 048
     Dates: end: 20111019
  6. ZOLPIDEM [Suspect]
     Dosage: 10 MG
     Route: 048
     Dates: end: 20111019
  7. TELMISARTAN AND HYDROCHLOROTHIAZIDE [Suspect]
     Dosage: TELMISARTAN80MG+HYDROCHLOROTHIAZIDE12.5MG
     Route: 048
     Dates: end: 20111019
  8. PLAVIX [Suspect]
     Indication: CEREBRAL INFARCTION
     Dosage: 50 MG
     Route: 048
     Dates: start: 20100528, end: 20110831
  9. PLAVIX [Suspect]
     Dosage: 75 MG
     Route: 048
     Dates: start: 20110901, end: 20111019
  10. AMLODIN OD [Suspect]
     Route: 065
  11. TALION OD [Concomitant]
     Route: 065
  12. URINORM [Concomitant]
     Dosage: 50 MG
     Route: 048
     Dates: end: 20111019

REACTIONS (3)
  - BLOOD CREATINE PHOSPHOKINASE INCREASED [None]
  - INFECTION [None]
  - NEPHROPATHY [None]
